FAERS Safety Report 9788362 (Version 1)
Quarter: 2013Q4

REPORT INFORMATION
  Report Type: Spontaneous
  Country: PT (occurrence: PT)
  Receive Date: 20131230
  Receipt Date: 20131230
  Transmission Date: 20140711
  Serious: Yes (Other)
  Sender: FDA-Public Use
  Company Number: PHHY2013PT151231

PATIENT
  Age: 49 Year
  Sex: Male

DRUGS (1)
  1. ZOLEDRONATE [Suspect]
     Dosage: 4 MG, EVERY 3 WEEKS
     Route: 042

REACTIONS (4)
  - Osteonecrosis of jaw [Recovered/Resolved]
  - Trismus [Recovered/Resolved]
  - Swelling [Recovered/Resolved]
  - Pain in jaw [Recovered/Resolved]
